FAERS Safety Report 19479133 (Version 2)
Quarter: 2021Q3

REPORT INFORMATION
  Report Type: Spontaneous
  Country: SG (occurrence: SG)
  Receive Date: 20210630
  Receipt Date: 20210810
  Transmission Date: 20211014
  Serious: Yes (Death)
  Sender: FDA-Public Use
  Company Number: SG-EMD SERONO-9248289

PATIENT
  Age: 58 Year
  Sex: Female

DRUGS (2)
  1. ERBITUX [Suspect]
     Active Substance: CETUXIMAB
     Indication: COLORECTAL CANCER METASTATIC
  2. BAVENCIO [Suspect]
     Active Substance: AVELUMAB
     Indication: COLORECTAL CANCER METASTATIC

REACTIONS (2)
  - Off label use [Unknown]
  - Hepatic failure [Fatal]
